FAERS Safety Report 8133729-2 (Version None)
Quarter: 2012Q1

REPORT INFORMATION
  Report Type: 
  Country: None (occurrence: None)
  Receive Date: 20120213
  Receipt Date: 20120203
  Transmission Date: 20120608
  Serious: Yes (Hospitalization)
  Sender: FDA-Public Use
  Company Number: CA-ABBOTT-12P-028-0901366-00

PATIENT
  Age: 78 Year
  Sex: Male

DRUGS (6)
  1. MULTISURE FOR MEN [Concomitant]
     Indication: PROPHYLAXIS
     Route: 048
     Dates: start: 20061107
  2. ASPIRIN [Concomitant]
     Indication: PROPHYLAXIS
     Route: 048
     Dates: start: 20111001
  3. LIPITOR [Concomitant]
     Indication: HYPERLIPIDAEMIA
     Route: 048
     Dates: start: 20040101
  4. LORAZEPAM [Concomitant]
     Indication: ANXIETY
     Route: 048
     Dates: start: 19860101
  5. LUPRON DEPOT [Suspect]
     Indication: PROSTATE CANCER
     Dates: start: 20070126
  6. BISOPROLOL FUMARATE [Concomitant]
     Indication: HYPERTENSION
     Route: 048
     Dates: start: 20111001

REACTIONS (5)
  - DIARRHOEA HAEMORRHAGIC [None]
  - ASTHENIA [None]
  - ENDOCARDITIS BACTERIAL [None]
  - ESCHERICHIA INFECTION [None]
  - STAPHYLOCOCCUS TEST POSITIVE [None]
